FAERS Safety Report 8905561 (Version 2)
Quarter: 2012Q4

REPORT INFORMATION
  Report Type: 
  Country: CA (occurrence: CA)
  Receive Date: 20121109
  Receipt Date: 20121126
  Transmission Date: 20130627
  Serious: Yes (Other)
  Sender: FDA-Public Use
  Company Number: PHHY2012CA100672

PATIENT
  Sex: Female

DRUGS (9)
  1. GILENYA [Suspect]
     Indication: RELAPSING-REMITTING MULTIPLE SCLEROSIS
     Dosage: 0.5 mg, QD
     Route: 048
     Dates: start: 20111116
  2. CARBAMAZEPINE [Concomitant]
     Dosage: 200 mg, BID
  3. LYRICA [Concomitant]
     Dosage: 75 mg, UNK
  4. OXYCONTIN [Concomitant]
     Dosage: 10 mg, BID
  5. NAPROXEN [Concomitant]
     Dosage: 250 mg, PRN
  6. VITAMIN D [Concomitant]
     Dosage: 4000 IU, UNK
  7. METAMUCIL [Concomitant]
  8. BENEFIBER [Concomitant]
  9. STOOL SOFTENER [Concomitant]

REACTIONS (22)
  - Cholelithiasis [Recovering/Resolving]
  - Sensory disturbance [Unknown]
  - Cognitive disorder [Unknown]
  - Flatulence [Unknown]
  - Communication disorder [Unknown]
  - Reflex test abnormal [Unknown]
  - Flushing [Unknown]
  - Pallor [Unknown]
  - Eye inflammation [Unknown]
  - Erythema [Unknown]
  - Gait disturbance [Unknown]
  - Fatigue [Unknown]
  - Pain [Unknown]
  - Cystitis [Unknown]
  - Respiratory tract infection [Unknown]
  - Urinary tract infection [Unknown]
  - Dyspnoea [Unknown]
  - Nasopharyngitis [Unknown]
  - Paraesthesia [Unknown]
  - Back pain [Unknown]
  - Asthenia [Unknown]
  - White blood cell count decreased [Recovering/Resolving]
